FAERS Safety Report 15109693 (Version 1)
Quarter: 2018Q3

REPORT INFORMATION
  Report Type: Report from Study
  Country: CN (occurrence: CN)
  Receive Date: 20180705
  Receipt Date: 20180705
  Transmission Date: 20181010
  Serious: Yes (Other)
  Sender: FDA-Public Use
  Company Number: PHHY2018CN032468

PATIENT
  Sex: Female
  Weight: 3.4 kg

DRUGS (1)
  1. SEBIVO [Suspect]
     Active Substance: TELBIVUDINE
     Indication: FOETAL EXPOSURE DURING PREGNANCY
     Dosage: MATERNAL DOSE: 600 OT
     Route: 064

REACTIONS (2)
  - Foetal exposure during pregnancy [Unknown]
  - Accessory auricle [Unknown]
